FAERS Safety Report 4747327-1 (Version None)
Quarter: 2005Q3

REPORT INFORMATION
  Report Type: 
  Country: None (occurrence: None)
  Receive Date: 20050816
  Receipt Date: 20050804
  Transmission Date: 20060218
  Serious: Yes (Death)
  Sender: FDA-Public Use
  Company Number: 2005-DE-03042GD

PATIENT
  Age: 39 Year
  Sex: Female

DRUGS (5)
  1. CODEINE SUL TAB [Suspect]
  2. MORPHINE [Suspect]
  3. CITALOPRAM HYDROBROMIDE [Suspect]
  4. COCAINE (COCAINE) [Suspect]
  5. BENZODIAZEPINE (BENZODIAZEPINE DERIVATIVES) [Suspect]

REACTIONS (2)
  - ACCIDENTAL POISONING [None]
  - DRUG ABUSER [None]
